FAERS Safety Report 5266211-0 (Version None)
Quarter: 2007Q1

REPORT INFORMATION
  Report Type: 
  Country: None (occurrence: None)
  Receive Date: 20070315
  Receipt Date: 20070313
  Transmission Date: 20070707
  Serious: Yes (Other)
  Sender: FDA-Public Use
  Company Number: US-GLAXOSMITHKLINE-A0643079A

PATIENT
  Age: 50 Year
  Sex: Male

DRUGS (6)
  1. LAMICTAL [Suspect]
     Indication: SCHIZOAFFECTIVE DISORDER
     Dosage: 100MG THREE TIMES PER DAY
     Route: 048
  2. RISPERDAL [Concomitant]
  3. NORTRIPTYLINE HCL [Concomitant]
  4. PREVACID [Concomitant]
  5. METHADONE HCL [Concomitant]
  6. CLONOPIN [Concomitant]

REACTIONS (7)
  - ANXIETY [None]
  - DEPRESSION [None]
  - FEAR [None]
  - FEELING OF DESPAIR [None]
  - MOOD SWINGS [None]
  - PALPITATIONS [None]
  - SUICIDAL IDEATION [None]
